FAERS Safety Report 19006642 (Version 1)
Quarter: 2021Q1

REPORT INFORMATION
  Report Type: Spontaneous
  Country: US (occurrence: US)
  Receive Date: 20210311
  Receipt Date: 20210311
  Transmission Date: 20210420
  Serious: No
  Sender: FDA-Public Use
  Company Number: None

PATIENT
  Age: 63 Year
  Sex: Male

DRUGS (1)
  1. NALTREXONE (NALTREXONE (EQV?REVIA) 50MG TAB) [Suspect]
     Active Substance: NALTREXONE
     Indication: ALCOHOL ABUSE
     Route: 048
     Dates: start: 20200822, end: 20201203

REACTIONS (1)
  - Insomnia [None]

NARRATIVE: CASE EVENT DATE: 20201203
